FAERS Safety Report 19446408 (Version 1)
Quarter: 2021Q2

REPORT INFORMATION
  Report Type: Spontaneous
  Country: AU (occurrence: AU)
  Receive Date: 20210622
  Receipt Date: 20210622
  Transmission Date: 20210717
  Serious: Yes (Other)
  Sender: FDA-Public Use
  Company Number: AU-TOPROL-2021000128

PATIENT
  Age: 81 Year
  Sex: Female

DRUGS (2)
  1. BETALOC [Suspect]
     Active Substance: METOPROLOL
     Route: 048
  2. TOPROL XL [Suspect]
     Active Substance: METOPROLOL SUCCINATE
     Route: 048

REACTIONS (2)
  - Chronic kidney disease [Unknown]
  - Cardiac failure chronic [Unknown]
